FAERS Safety Report 19943497 (Version 2)
Quarter: 2021Q4

REPORT INFORMATION
  Report Type: Spontaneous
  Country: JP (occurrence: JP)
  Receive Date: 20211011
  Receipt Date: 20211103
  Transmission Date: 20220304
  Serious: Yes (Other)
  Sender: FDA-Public Use
  Company Number: JP-PFIZER INC-2021894639

PATIENT
  Age: 47 Year
  Sex: Female

DRUGS (3)
  1. INLYTA [Suspect]
     Active Substance: AXITINIB
     Dosage: 5 MG, DAILY
     Route: 048
     Dates: start: 202009
  2. INLYTA [Suspect]
     Active Substance: AXITINIB
     Dosage: 7 MG, DAILY
     Route: 048
     Dates: start: 202109
  3. KEYTRUDA [Suspect]
     Active Substance: PEMBROLIZUMAB
     Dosage: UNK
     Route: 048
     Dates: start: 202011

REACTIONS (12)
  - Liver disorder [Unknown]
  - Thyroid disorder [Unknown]
  - Hyperlipidaemia [Recovered/Resolved]
  - Amenorrhoea [Unknown]
  - Pain in extremity [Unknown]
  - Faeces soft [Not Recovered/Not Resolved]
  - Pallor [Unknown]
  - Anaemia [Recovered/Resolved]
  - Ovarian cyst [Unknown]
  - Heavy menstrual bleeding [Unknown]
  - Physical deconditioning [Unknown]
  - Malaise [Recovered/Resolved]

NARRATIVE: CASE EVENT DATE: 20210601
